FAERS Safety Report 4337027-4 (Version None)
Quarter: 2004Q1

REPORT INFORMATION
  Report Type: 
  Country: None (occurrence: None)
  Receive Date: 20040329
  Receipt Date: 20040115
  Transmission Date: 20041129
  Serious: No
  Sender: FDA-Public Use
  Company Number: USA040156772

PATIENT
  Age: 11 Year
  Sex: Female
  Weight: 25 kg

DRUGS (5)
  1. STRATTERA [Suspect]
     Indication: ANGER
     Dosage: 18 MG
     Dates: start: 20031201
  2. STRATTERA [Suspect]
     Indication: ANXIETY
     Dosage: 18 MG
     Dates: start: 20031201
  3. STRATTERA [Suspect]
     Indication: DEPRESSION
     Dosage: 18 MG
     Dates: start: 20031201
  4. STRATTERA [Suspect]
     Indication: PSYCHOMOTOR HYPERACTIVITY
     Dosage: 18 MG
     Dates: start: 20031201
  5. PROZAC [Suspect]
     Indication: ANXIETY
     Dosage: 30 MG
     Dates: start: 20030701

REACTIONS (2)
  - BLEPHAROSPASM [None]
  - EYE DISCHARGE [None]
